FAERS Safety Report 11099708 (Version 2)
Quarter: 2015Q2

REPORT INFORMATION
  Report Type: Spontaneous
  Country: US (occurrence: US)
  Receive Date: 20150508
  Receipt Date: 20150618
  Transmission Date: 20150821
  Serious: Yes (Hospitalization)
  Sender: FDA-Public Use
  Company Number: US-JNJFOC-20150504120

PATIENT
  Age: 76 Year
  Sex: Female

DRUGS (5)
  1. ZOLOFT [Concomitant]
     Active Substance: SERTRALINE HYDROCHLORIDE
  2. VITAMIN B12 [Concomitant]
     Active Substance: CYANOCOBALAMIN
  3. IMBRUVICA [Suspect]
     Active Substance: IBRUTINIB
     Indication: LYMPHOMA
     Route: 048
     Dates: start: 20150323
  4. NORVASC [Concomitant]
     Active Substance: AMLODIPINE BESYLATE
  5. HYDROXYZINE HCL [Concomitant]
     Active Substance: HYDROXYZINE HYDROCHLORIDE

REACTIONS (7)
  - Dyspnoea [Recovered/Resolved]
  - Wheezing [Unknown]
  - Fatigue [Unknown]
  - Pleural effusion [Not Recovered/Not Resolved]
  - Platelet count decreased [Unknown]
  - Visual impairment [Unknown]
  - Dry mouth [Unknown]

NARRATIVE: CASE EVENT DATE: 2015
